FAERS Safety Report 7931357-2 (Version None)
Quarter: 2011Q4

REPORT INFORMATION
  Report Type: 
  Country: None (occurrence: None)
  Receive Date: 20111121
  Receipt Date: 20110823
  Transmission Date: 20120403
  Serious: No
  Sender: FDA-Public Use
  Company Number: US-BAYER-2011-080165

PATIENT
  Sex: Female

DRUGS (3)
  1. MOTRIN [Concomitant]
     Indication: HEADACHE
  2. ALEVE (CAPLET) [Suspect]
     Route: 048
  3. MOTRIN [Concomitant]
     Indication: ANALGESIC THERAPY

REACTIONS (1)
  - HEADACHE [None]
